FAERS Safety Report 21751940 (Version 2)
Quarter: 2023Q1

REPORT INFORMATION
  Report Type: Spontaneous
  Country: JP (occurrence: JP)
  Receive Date: 20221220
  Receipt Date: 20230112
  Transmission Date: 20230418
  Serious: Yes (Hospitalization)
  Sender: FDA-Public Use
  Company Number: JP-GEHPL-2022JSU009131AA

PATIENT
  Age: 66 Year
  Sex: Female
  Weight: 43 kg

DRUGS (2)
  1. OMNIPAQUE [Suspect]
     Active Substance: IOHEXOL
     Indication: Computerised tomogram
     Dosage: 100 ML, SINGLE
     Route: 042
     Dates: start: 20221214, end: 20221214
  2. OMNIPAQUE [Suspect]
     Active Substance: IOHEXOL
     Indication: Gastric cancer

REACTIONS (1)
  - Anaphylactic shock [Recovered/Resolved]

NARRATIVE: CASE EVENT DATE: 20221214
